FAERS Safety Report 6256832-0 (Version None)
Quarter: 2009Q3

REPORT INFORMATION
  Report Type: 
  Country: None (occurrence: None)
  Receive Date: 20090706
  Receipt Date: 20090624
  Transmission Date: 20100115
  Serious: Yes (Other)
  Sender: FDA-Public Use
  Company Number: PHHY2009JP25641

PATIENT
  Age: 59 Year
  Sex: Female

DRUGS (5)
  1. CICLOSPORIN [Suspect]
     Indication: SYSTEMIC LUPUS ERYTHEMATOSUS
     Dosage: UNK
     Dates: start: 19980101, end: 20010101
  2. CICLOSPORIN [Suspect]
     Dosage: UNK
     Dates: start: 20051201
  3. CYCLOPHOSPHAMIDE [Concomitant]
     Indication: SYSTEMIC LUPUS ERYTHEMATOSUS
     Dosage: UNK
     Route: 042
  4. MYCOPHENOLATE MOFETIL [Concomitant]
     Indication: SYSTEMIC LUPUS ERYTHEMATOSUS
  5. ADRENAL HORMONE PREPARATION [Concomitant]
     Indication: SYSTEMIC LUPUS ERYTHEMATOSUS

REACTIONS (3)
  - CYTOMEGALOVIRUS ENTEROCOLITIS [None]
  - FULL BLOOD COUNT DECREASED [None]
  - LIVER DISORDER [None]
